FAERS Safety Report 5904564-8 (Version None)
Quarter: 2008Q4

REPORT INFORMATION
  Report Type: 
  Country: None (occurrence: None)
  Receive Date: 20081001
  Receipt Date: 20080929
  Transmission Date: 20090506
  Serious: Yes (Hospitalization, Other)
  Sender: FDA-Public Use
  Company Number: US-ELI_LILLY_AND_COMPANY-US200809006773

PATIENT
  Sex: Female

DRUGS (2)
  1. HUMALOG [Suspect]
  2. ASPIRIN [Concomitant]

REACTIONS (9)
  - BLOOD GLUCOSE DECREASED [None]
  - BLOOD GLUCOSE INCREASED [None]
  - CEREBROVASCULAR ACCIDENT [None]
  - HERPES ZOSTER [None]
  - MOVEMENT DISORDER [None]
  - NASOPHARYNGITIS [None]
  - PAIN [None]
  - RASH [None]
  - SOMNOLENCE [None]
